FAERS Safety Report 5881809-4 (Version None)
Quarter: 2008Q3

REPORT INFORMATION
  Report Type: 
  Country: None (occurrence: None)
  Receive Date: 20080912
  Receipt Date: 20080716
  Transmission Date: 20090109
  Serious: No
  Sender: FDA-Public Use
  Company Number: US-ABBOTT-08P-163-0463220-00

PATIENT
  Sex: Male
  Weight: 90.8 kg

DRUGS (3)
  1. HUMIRA [Suspect]
     Indication: PSORIATIC ARTHROPATHY
     Route: 058
     Dates: start: 20080401
  2. MELOXICAM [Concomitant]
     Indication: ARTHRITIS
     Dates: start: 20080501
  3. VICODIN [Concomitant]
     Indication: PAIN

REACTIONS (2)
  - INJECTION SITE IRRITATION [None]
  - NASOPHARYNGITIS [None]
